FAERS Safety Report 25330300 (Version 1)
Quarter: 2025Q2

REPORT INFORMATION
  Report Type: Spontaneous
  Country: US (occurrence: None)
  Receive Date: 20250516
  Receipt Date: 20250516
  Transmission Date: 20250716
  Serious: Yes (Death)
  Sender: FDA-CTU
  Company Number: None

PATIENT
  Age: 15 Year
  Sex: Male
  Weight: 69.75 kg

DRUGS (2)
  1. KEFLEX [Suspect]
     Active Substance: CEPHALEXIN
     Indication: Skin laceration
     Dates: start: 20240713, end: 20240719
  2. topical ance medication [Concomitant]

REACTIONS (6)
  - Periorbital swelling [None]
  - Appetite disorder [None]
  - Fatigue [None]
  - Malaise [None]
  - Completed suicide [None]
  - Gun shot wound [None]
